FAERS Safety Report 11842259 (Version 1)
Quarter: 2015Q4

REPORT INFORMATION
  Report Type: Report from Study
  Country: US (occurrence: US)
  Receive Date: 20151216
  Receipt Date: 20151216
  Transmission Date: 20160305
  Serious: Yes (Hospitalization)
  Sender: FDA-Public Use
  Company Number: US-EISAI MEDICAL RESEARCH-EC-2015-012829

PATIENT
  Age: 67 Year
  Sex: Female
  Weight: 68.03 kg

DRUGS (1)
  1. ERIBULIN [Suspect]
     Active Substance: ERIBULIN
     Indication: BREAST CANCER METASTATIC
     Route: 041
     Dates: start: 20150721, end: 20150721

REACTIONS (1)
  - Febrile neutropenia [Recovered/Resolved]

NARRATIVE: CASE EVENT DATE: 20150729
